FAERS Safety Report 14177680 (Version 1)
Quarter: 2017Q4

REPORT INFORMATION
  Report Type: Other
  Country: None (occurrence: US)
  Receive Date: 20171110
  Receipt Date: 20171110
  Transmission Date: 20180321
  Serious: Yes (Other)
  Sender: FDA-Public Use
  Company Number: US-THE PROACTIV LLC-2033843

PATIENT
  Age: 42 Year
  Sex: Female

DRUGS (4)
  1. PROACTIV RENEWING CLEANSER [Suspect]
     Active Substance: BENZOYL PEROXIDE
     Indication: ACNE
     Route: 061
     Dates: start: 201707, end: 20171015
  2. PROACTIVPLUS REPAIRING CONCEALER (LIGHT/MEDIUM/TAN/DARK) [Suspect]
     Active Substance: SALICYLIC ACID
     Route: 061
     Dates: start: 201707, end: 20171015
  3. ZYRTEC [Concomitant]
     Active Substance: CETIRIZINE HYDROCHLORIDE
  4. ZANTAC [Concomitant]
     Active Substance: RANITIDINE HYDROCHLORIDE

REACTIONS (4)
  - Pharyngeal oedema [Not Recovered/Not Resolved]
  - Urticaria [Not Recovered/Not Resolved]
  - Skin swelling [Not Recovered/Not Resolved]
  - Hypoaesthesia [None]

NARRATIVE: CASE EVENT DATE: 201710
